FAERS Safety Report 4848367-4 (Version None)
Quarter: 2005Q4

REPORT INFORMATION
  Report Type: 
  Country: None (occurrence: None)
  Receive Date: 20051207
  Receipt Date: 20051207
  Transmission Date: 20060501
  Serious: No
  Sender: FDA-Public Use
  Company Number: None

PATIENT
  Age: 92 Year
  Sex: Male

DRUGS (2)
  1. MAALOX REGULAR STRENGTH [Suspect]
     Dosage: LIQUID
  2. MAALOX MAXIMUM STRENGTH TOTAL STOMACH RELIEF [Suspect]
     Dosage: LIQUID

REACTIONS (2)
  - FAECES DISCOLOURED [None]
  - MEDICATION ERROR [None]
